FAERS Safety Report 16260683 (Version 3)
Quarter: 2019Q2

REPORT INFORMATION
  Report Type: Report from Study
  Country: GB (occurrence: GB)
  Receive Date: 20190501
  Receipt Date: 20190521
  Transmission Date: 20190711
  Serious: Yes (Hospitalization, Other)
  Sender: FDA-Public Use
  Company Number: GB-ROCHE-2307889

PATIENT
  Age: 75 Year
  Sex: Male
  Weight: 95.3 kg

DRUGS (10)
  1. BISOPROLOL [Concomitant]
     Active Substance: BISOPROLOL
     Route: 048
  2. COTRIMOXAZOLE [Concomitant]
     Active Substance: SULFAMETHOXAZOLE\TRIMETHOPRIM
     Route: 048
  3. FLUCLOXACILLIN [Concomitant]
     Active Substance: FLUCLOXACILLIN
     Route: 048
     Dates: start: 20190430
  4. LANSOPRAZOLE. [Concomitant]
     Active Substance: LANSOPRAZOLE
     Route: 048
  5. ATEZOLIZUMAB. [Suspect]
     Active Substance: ATEZOLIZUMAB
     Indication: NON-HODGKIN^S LYMPHOMA
     Dosage: DATE OF MOST RECENT DOSE 840 MG OF ATEZOLIZUMAB ADMINISTERED PRIOR TO ONSET OF SAE ON 02/APR/2019
     Route: 065
     Dates: start: 20181127
  6. OXALIPLATIN. [Suspect]
     Active Substance: OXALIPLATIN
     Indication: NON-HODGKIN^S LYMPHOMA
     Dosage: DATE OF MOST RECENT DOSE 165 MG OF OXALIPLATIN ADMINISTERED ON 02/APR/2019
     Route: 065
     Dates: start: 20181023
  7. G-CSF [Suspect]
     Active Substance: GRANULOCYTE COLONY-STIMULATING FACTOR NOS
     Indication: NON-HODGKIN^S LYMPHOMA
     Dosage: DATE OF MOST RECENT DOSE 30 MILLION OMD ADMINISTERED PRIOR TO ONSET OF SAE ON 12/APR/2019
     Route: 065
     Dates: start: 20181130
  8. CARBOCYSTEINE [Concomitant]
     Active Substance: CARBOCYSTEINE
     Route: 048
  9. RITUXIMAB. [Suspect]
     Active Substance: RITUXIMAB
     Indication: NON-HODGKIN^S LYMPHOMA
     Dosage: DATE OF MOST RECENT DOSE 1.400 MG OF RITUXIMAB ADMINISTERED PRIOR TO ONSET OF SAE ON 02/APR/2019
     Route: 058
     Dates: start: 20181023
  10. GEMCITABINE [Suspect]
     Active Substance: GEMCITABINE\GEMCITABINE HYDROCHLORIDE
     Indication: NON-HODGKIN^S LYMPHOMA
     Dosage: DATE OF MOST RECENT ADMINISTRATION OF 1.710 MG OF GEMCITABINE ON 02/APR/2019
     Route: 065
     Dates: start: 20181023

REACTIONS (2)
  - Atrial fibrillation [Recovered/Resolved]
  - Atrial flutter [Not Recovered/Not Resolved]

NARRATIVE: CASE EVENT DATE: 20190416
